FAERS Safety Report 9017493 (Version 2)
Quarter: 2013Q1

REPORT INFORMATION
  Report Type: Spontaneous
  Country: JP (occurrence: JP)
  Receive Date: 20130117
  Receipt Date: 20130124
  Transmission Date: 20140127
  Serious: Yes (Death)
  Sender: FDA-Public Use
  Company Number: JP-BAXTER-2013BAX002117

PATIENT
  Sex: Female

DRUGS (2)
  1. DIANEAL-N PD-4 1.5 PD SOLUTION [Suspect]
     Indication: NEPHROSCLEROSIS
     Route: 033
     Dates: start: 20120613, end: 20130112
  2. EXTRANEAL [Suspect]
     Indication: NEPHROSCLEROSIS
     Route: 033
     Dates: start: 20120613, end: 20130112

REACTIONS (1)
  - Marasmus [Fatal]
